FAERS Safety Report 10052145 (Version 1)
Quarter: 2014Q2

REPORT INFORMATION
  Report Type: Spontaneous
  Country: US (occurrence: None)
  Receive Date: 20140401
  Receipt Date: 20140401
  Transmission Date: 20141212
  Serious: Yes (Disabling)
  Sender: FDA-Public Use
  Company Number: None

PATIENT
  Age: 60 Year
  Sex: Female
  Weight: 83.92 kg

DRUGS (1)
  1. JANUVIA [Suspect]
     Dosage: 1 PILL DAILY ... AM  ONCE DAILY  TAKEN  BY MOUTH
     Route: 048

REACTIONS (5)
  - Productive cough [None]
  - Therapy cessation [None]
  - Blood glucose increased [None]
  - Myalgia [None]
  - Asthenia [None]
